FAERS Safety Report 22308767 (Version 1)
Quarter: 2023Q2

REPORT INFORMATION
  Report Type: Spontaneous
  Country: PL (occurrence: None)
  Receive Date: 20230511
  Receipt Date: 20230511
  Transmission Date: 20230721
  Serious: Yes (Other)
  Sender: FDA-Public Use
  Company Number: 2023A106131

PATIENT
  Sex: Female

DRUGS (2)
  1. FULVESTRANT [Suspect]
     Active Substance: FULVESTRANT
     Indication: Breast cancer
     Dosage: UNK (3 CYCLE)
     Dates: start: 20220517
  2. FULVESTRANT [Suspect]
     Active Substance: FULVESTRANT
     Indication: Metastases to bone
     Dosage: UNK (3 CYCLE)
     Dates: start: 20220517

REACTIONS (3)
  - Malignant neoplasm progression [Unknown]
  - Metastases to bone [Unknown]
  - Breast cancer [Unknown]
